FAERS Safety Report 10508632 (Version 2)
Quarter: 2014Q4

REPORT INFORMATION
  Report Type: Spontaneous
  Country: DE (occurrence: DE)
  Receive Date: 20141009
  Receipt Date: 20141009
  Transmission Date: 20150528
  Serious: Yes (Death, Hospitalization)
  Sender: FDA-Public Use
  Company Number: DE-ASPEN PHARMA TRADING LIMITED US-AS-2014-006211

PATIENT
  Sex: Female

DRUGS (9)
  1. ARIXTRA [Suspect]
     Active Substance: FONDAPARINUX SODIUM
     Indication: PROPHYLAXIS
  2. TRAMADOL LONG 50 [Concomitant]
     Indication: PAIN
     Route: 048
  3. NITRENDIPINE [Concomitant]
     Active Substance: NITRENDIPINE
     Indication: PRODUCT USED FOR UNKNOWN INDICATION
     Dosage: DOSIS 1X1, ORAL, SINCE YEARS
     Route: 048
  4. ARIXTRA [Suspect]
     Active Substance: FONDAPARINUX SODIUM
     Indication: SYNOVIAL CYST
  5. TRIAMTEREN COMP [Concomitant]
     Indication: PRODUCT USED FOR UNKNOWN INDICATION
     Dosage: DOSIS 50/25, 1X1, ORAL
     Route: 048
  6. NOVAMINSULFON [Concomitant]
     Active Substance: METAMIZOLE
     Indication: PRODUCT USED FOR UNKNOWN INDICATION
     Dosage: DOSSIS 3 X 20 DROPS
     Route: 048
     Dates: start: 20130712
  7. ARIXTRA [Suspect]
     Active Substance: FONDAPARINUX SODIUM
     Indication: OVARIAN VEIN THROMBOSIS
  8. FOSAVANCE 70 DOSE [Concomitant]
     Indication: PRODUCT USED FOR UNKNOWN INDICATION
     Dosage: DOSIS 1X1
     Route: 048
     Dates: start: 20100419
  9. ARIXTRA [Suspect]
     Active Substance: FONDAPARINUX SODIUM
     Indication: DEEP VEIN THROMBOSIS
     Route: 058
     Dates: start: 20140109, end: 20140114

REACTIONS (4)
  - Petechiae [Unknown]
  - Mouth haemorrhage [Not Recovered/Not Resolved]
  - Subdural haemorrhage [Fatal]
  - Hemiparesis [Unknown]
